FAERS Safety Report 7550390-6 (Version None)
Quarter: 2011Q2

REPORT INFORMATION
  Report Type: 
  Country: None (occurrence: None)
  Receive Date: 20110615
  Receipt Date: 20110607
  Transmission Date: 20111010
  Serious: Yes (Hospitalization, Other)
  Sender: FDA-Public Use
  Company Number: US-TEVA-267674USA

PATIENT
  Sex: Female
  Weight: 91.708 kg

DRUGS (1)
  1. POTASSIUM CHLORIDE [Suspect]

REACTIONS (9)
  - PYREXIA [None]
  - THROAT IRRITATION [None]
  - OROPHARYNGEAL PAIN [None]
  - OESOPHAGEAL IRRITATION [None]
  - COUGH [None]
  - BRONCHITIS [None]
  - DRUG ADMINISTRATION ERROR [None]
  - HAEMOPTYSIS [None]
  - FOREIGN BODY [None]
